FAERS Safety Report 4688926-5 (Version None)
Quarter: 2005Q2

REPORT INFORMATION
  Report Type: 
  Country: None (occurrence: None)
  Receive Date: 20050613
  Receipt Date: 20040804
  Transmission Date: 20051028
  Serious: Yes (Hospitalization, Disabling)
  Sender: FDA-Public Use
  Company Number: US-ROCHE-376777

PATIENT
  Age: 28 Year
  Sex: Male

DRUGS (1)
  1. ACCUTANE [Suspect]
     Indication: ACNE
     Route: 048
     Dates: start: 19831215, end: 19840415

REACTIONS (79)
  - ABDOMINAL DISTENSION [None]
  - ABDOMINAL PAIN LOWER [None]
  - ABDOMINAL TENDERNESS [None]
  - ABNORMAL FAECES [None]
  - ACNE [None]
  - ANAEMIA [None]
  - ANOREXIA [None]
  - ANXIETY [None]
  - APPENDICECTOMY [None]
  - ARTHRALGIA [None]
  - ARTHRITIS [None]
  - ASTHENIA [None]
  - ATELECTASIS [None]
  - BACK PAIN [None]
  - CHEST PAIN [None]
  - CHILLS [None]
  - COLECTOMY [None]
  - COLITIS [None]
  - COLITIS ULCERATIVE [None]
  - COMPUTERISED TOMOGRAM ABNORMAL [None]
  - CONSTIPATION [None]
  - COUGH [None]
  - CYST [None]
  - DEHYDRATION [None]
  - DEPRESSION [None]
  - DIARRHOEA HAEMORRHAGIC [None]
  - DIVERTICULITIS [None]
  - DIVERTICULUM [None]
  - DRY SKIN [None]
  - DYSPNOEA [None]
  - DYSURIA [None]
  - EMOTIONAL DISTRESS [None]
  - ERUCTATION [None]
  - FAECES DISCOLOURED [None]
  - FALL [None]
  - FAT NECROSIS [None]
  - FATIGUE [None]
  - GASTROINTESTINAL DISORDER [None]
  - GASTROOESOPHAGEAL REFLUX DISEASE [None]
  - GRANULOMA [None]
  - HEADACHE [None]
  - HEPATIC ENZYME INCREASED [None]
  - HERNIA [None]
  - ILEUS [None]
  - INSOMNIA [None]
  - INTESTINAL HAEMORRHAGE [None]
  - IRRITABLE BOWEL SYNDROME [None]
  - JOINT RANGE OF MOTION DECREASED [None]
  - LEUKOPENIA [None]
  - LIVER DISORDER [None]
  - MALAISE [None]
  - MUCOSAL INFLAMMATION [None]
  - MULTI-ORGAN DISORDER [None]
  - MUSCULOSKELETAL DISORDER [None]
  - NIGHT SWEATS [None]
  - ORAL INTAKE REDUCED [None]
  - PAIN [None]
  - PAIN IN EXTREMITY [None]
  - PANCYTOPENIA [None]
  - PLEURITIC PAIN [None]
  - POLLAKIURIA [None]
  - POUCHITIS [None]
  - PROSTATITIS [None]
  - PRURITUS [None]
  - PRURITUS ANI [None]
  - RASH [None]
  - SCIATICA [None]
  - SINUSITIS [None]
  - SKIN PAPILLOMA [None]
  - SNORING [None]
  - STRESS [None]
  - THIRST [None]
  - THROMBOCYTOPENIA [None]
  - UPPER RESPIRATORY TRACT INFECTION [None]
  - UVULITIS [None]
  - VIRAL INFECTION [None]
  - VOMITING [None]
  - WEIGHT DECREASED [None]
  - WEIGHT INCREASED [None]
